FAERS Safety Report 21522096 (Version 3)
Quarter: 2022Q4

REPORT INFORMATION
  Report Type: Report from Study
  Country: CL (occurrence: CL)
  Receive Date: 20221028
  Receipt Date: 20221110
  Transmission Date: 20230112
  Serious: Yes (Hospitalization, Other)
  Sender: FDA-Public Use
  Company Number: CL-BRISTOL-MYERS SQUIBB COMPANY-2022-114591

PATIENT
  Age: 21 Year
  Sex: Female
  Weight: 62 kg

DRUGS (28)
  1. IPILIMUMAB [Suspect]
     Active Substance: IPILIMUMAB
     Indication: Colorectal cancer metastatic
     Dosage: LAST DOSE ON 31-AUG-2022
     Route: 042
     Dates: start: 20220831
  2. TRAMETINIB [Suspect]
     Active Substance: TRAMETINIB
     Indication: Colorectal cancer metastatic
     Dosage: THE PATIENT RECEIVED MOST RECENT DOSE ON 28-SEP-2022
     Route: 048
     Dates: start: 20220831
  3. FEXOFENADINE [Concomitant]
     Active Substance: FEXOFENADINE HYDROCHLORIDE
     Indication: Product used for unknown indication
     Dosage: ONGOING
     Route: 048
     Dates: start: 20220914
  4. OMEPRAZOLE [Concomitant]
     Active Substance: OMEPRAZOLE
     Indication: Product used for unknown indication
     Dosage: ONGOING
     Route: 048
     Dates: start: 202109
  5. BUPRENORPHINE [Concomitant]
     Active Substance: BUPRENORPHINE
     Indication: Product used for unknown indication
     Dosage: ONGOING
     Route: 061
     Dates: start: 202109
  6. METHOCHLOROPRAMIDE [Concomitant]
     Indication: Product used for unknown indication
     Dosage: ONGOING
     Route: 048
     Dates: start: 202109
  7. METHOCHLOROPRAMIDE [Concomitant]
     Route: 048
     Dates: start: 20220914
  8. TRAMADOL DROPS [Concomitant]
     Indication: Product used for unknown indication
     Dosage: ONGOING, 1 DOSAGE FORM=24 UNITS
     Route: 048
     Dates: start: 202109
  9. KETOROLAC [Concomitant]
     Active Substance: KETOROLAC TROMETHAMINE
     Indication: Product used for unknown indication
     Dosage: ONGOING
     Route: 048
     Dates: start: 202109
  10. LEVOTHYROXINE SODIUM [Concomitant]
     Active Substance: LEVOTHYROXINE SODIUM
     Indication: Product used for unknown indication
     Dosage: ONGOING
     Route: 048
     Dates: start: 20220831
  11. CHLORPHENIRAMINE MALEATE [Concomitant]
     Active Substance: CHLORPHENIRAMINE MALEATE
     Indication: Product used for unknown indication
     Dosage: ONGOING
     Route: 048
     Dates: start: 20220914
  12. DOXYCYCLINE [Concomitant]
     Active Substance: DOXYCYCLINE
     Indication: Rash
     Route: 048
     Dates: start: 20220914
  13. CLOBETASOL [Concomitant]
     Active Substance: CLOBETASOL
     Indication: Rash
     Dosage: 2 (UNITS NOT PROVIDED)
     Route: 061
     Dates: start: 20220914
  14. ONDANSETRON [Concomitant]
     Active Substance: ONDANSETRON
     Indication: Product used for unknown indication
     Route: 042
     Dates: start: 20220911
  15. ONDANSETRON [Concomitant]
     Active Substance: ONDANSETRON
     Indication: Cyclic vomiting syndrome
     Route: 048
     Dates: start: 20220914
  16. ONDANSETRON [Concomitant]
     Active Substance: ONDANSETRON
     Route: 042
     Dates: start: 20221005, end: 20221005
  17. ONDANSETRON [Concomitant]
     Active Substance: ONDANSETRON
     Route: 042
     Dates: start: 20220928, end: 20220928
  18. AMLODIPINE [Concomitant]
     Active Substance: AMLODIPINE BESYLATE
     Indication: Hypertension
     Route: 048
     Dates: start: 20220914
  19. AMLODIPINE [Concomitant]
     Active Substance: AMLODIPINE BESYLATE
     Route: 048
     Dates: start: 20220929, end: 20221012
  20. ACETAMINOPHEN [Concomitant]
     Active Substance: ACETAMINOPHEN
     Indication: Headache
     Route: 048
     Dates: start: 20220914
  21. FERROUS FUMARATE [Concomitant]
     Active Substance: FERROUS FUMARATE
     Indication: Headache
     Dosage: 1DF (UNITS NOT PROVIDED)
     Route: 048
     Dates: start: 20220914
  22. METRONIDAZOLE [Concomitant]
     Active Substance: METRONIDAZOLE
     Indication: Rash
     Dosage: 1DF (UNITS NOT PROVIDED)
     Route: 048
     Dates: start: 20220914
  23. CALCIUM CHLORIDE [Concomitant]
     Active Substance: CALCIUM CHLORIDE
     Indication: Cyclic vomiting syndrome
     Dosage: 1DF= 500 (UNITS NOT PROVIDED)
     Route: 042
     Dates: start: 20220928, end: 20220928
  24. SODIUM LACTATE [Concomitant]
     Active Substance: SODIUM LACTATE
     Indication: Cyclic vomiting syndrome
     Dosage: 1DF= 500 (UNITS NOT PROVIDED)
     Route: 042
     Dates: start: 20220928, end: 20220928
  25. SODIUM CHLORIDE [Concomitant]
     Active Substance: SODIUM CHLORIDE
     Indication: Cyclic vomiting syndrome
     Dosage: 1DF= 500 (UNITS NOT PROVIDED)
     Route: 042
     Dates: start: 20220928, end: 20220928
  26. SODIUM CHLORIDE [Concomitant]
     Active Substance: SODIUM CHLORIDE
     Dosage: 1DF= 500 (UNITS NOT PROVIDED)
     Route: 042
     Dates: start: 20221005, end: 20221005
  27. POTASSIUM CHLORIDE [Concomitant]
     Active Substance: POTASSIUM CHLORIDE
     Indication: Cyclic vomiting syndrome
     Dosage: 1DF= 500 (UNITS NOT PROVIDED)
     Route: 042
     Dates: start: 20220928, end: 20220928
  28. LOSARTAN POTASSIUM [Concomitant]
     Active Substance: LOSARTAN POTASSIUM
     Indication: Hypertension
     Route: 048
     Dates: start: 20220928

REACTIONS (2)
  - Ejection fraction decreased [Recovered/Resolved]
  - Cardiac failure congestive [Recovered/Resolved]

NARRATIVE: CASE EVENT DATE: 20220927
